FAERS Safety Report 15374619 (Version 1)
Quarter: 2018Q3

REPORT INFORMATION
  Report Type: Spontaneous
  Country: JP (occurrence: JP)
  Receive Date: 20180912
  Receipt Date: 20180912
  Transmission Date: 20181010
  Serious: Yes (Other)
  Sender: FDA-Public Use
  Company Number: JP-PFIZER INC-2018364133

PATIENT
  Age: 4 Decade
  Sex: Female

DRUGS (2)
  1. LYRICA [Suspect]
     Active Substance: PREGABALIN
     Indication: NEURALGIA
     Dosage: 25 MG, 2X/DAY
  2. CELECOX [Suspect]
     Active Substance: CELECOXIB
     Indication: NEURALGIA
     Dosage: 100 MG, 2X/DAY

REACTIONS (1)
  - Drug eruption [Unknown]
